FAERS Safety Report 8909317 (Version 1)
Quarter: 2012Q4

REPORT INFORMATION
  Report Type: 
  Country: CH (occurrence: CH)
  Receive Date: 20121115
  Receipt Date: 20121115
  Transmission Date: 20130627
  Serious: Yes (Other)
  Sender: FDA-Public Use
  Company Number: CH-ROCHE-1155325

PATIENT

DRUGS (5)
  1. XELODA [Suspect]
     Indication: PRODUCT USED FOR UNKNOWN INDICATION
     Route: 065
  2. CISPLATIN [Concomitant]
  3. EPIRUBICIN [Concomitant]
  4. OXALIPLATIN [Concomitant]
  5. DOCETAXEL [Concomitant]

REACTIONS (1)
  - Disease progression [Unknown]
